FAERS Safety Report 14124278 (Version 1)
Quarter: 2017Q4

REPORT INFORMATION
  Report Type: Other
  Country: US (occurrence: US)
  Receive Date: 20171025
  Receipt Date: 20171025
  Transmission Date: 20180321
  Serious: No
  Sender: FDA-Public Use
  Company Number: US-AUROBINDO-AUR-APU-2015-06151

PATIENT

DRUGS (1)
  1. CARVEDILOL TABLETS 12.5 MG [Suspect]
     Active Substance: CARVEDILOL
     Indication: PRODUCT USED FOR UNKNOWN INDICATION
     Dosage: 12.5 MG,
     Route: 065

REACTIONS (3)
  - Pruritus [Recovered/Resolved]
  - Product substitution issue [Recovered/Resolved]
  - Fatigue [Recovered/Resolved]
